FAERS Safety Report 4285676-4 (Version None)
Quarter: 2004Q1

REPORT INFORMATION
  Report Type: 
  Country: None (occurrence: None)
  Receive Date: 20040202
  Receipt Date: 20040122
  Transmission Date: 20041129
  Serious: Yes (Other)
  Sender: FDA-Public Use
  Company Number: 2004192627US

PATIENT

DRUGS (1)
  1. CELEBREX [Suspect]

REACTIONS (6)
  - ABDOMINAL HAEMATOMA [None]
  - ABDOMINAL MASS [None]
  - ABDOMINAL STRANGULATED HERNIA [None]
  - DRUG HYPERSENSITIVITY [None]
  - HYPERTENSION [None]
  - SEROMA [None]
